FAERS Safety Report 6976065-X (Version None)
Quarter: 2010Q3

REPORT INFORMATION
  Report Type: 
  Country: None (occurrence: None)
  Receive Date: 20100910
  Receipt Date: 20090403
  Transmission Date: 20110219
  Serious: No
  Sender: FDA-Public Use
  Company Number: US-WYE-H08832009

PATIENT
  Sex: Female
  Weight: 66.28 kg

DRUGS (7)
  1. PRISTIQ [Suspect]
     Indication: DEPRESSION
     Route: 048
     Dates: start: 20090301
  2. PRISTIQ [Suspect]
     Indication: ANXIETY
  3. TRANXENE [Concomitant]
  4. VITAMIN B-12 [Concomitant]
  5. VITAMIN D [Concomitant]
  6. TENORMIN [Concomitant]
  7. LOTENSIN [Concomitant]

REACTIONS (3)
  - ANXIETY [None]
  - CONDITION AGGRAVATED [None]
  - INSOMNIA [None]
